FAERS Safety Report 15594914 (Version 1)
Quarter: 2018Q4

REPORT INFORMATION
  Report Type: Spontaneous
  Country: IL (occurrence: IL)
  Receive Date: 20181106
  Receipt Date: 20181106
  Transmission Date: 20190205
  Serious: Yes (Other)
  Sender: FDA-Public Use
  Company Number: US-SLATE RUN PHARMACEUTICALS-SLTR-AE-18-9

PATIENT
  Age: 22 Year
  Sex: Female

DRUGS (2)
  1. BUPROPION HYDROCHLORIDE ER TABLET USP [Suspect]
     Active Substance: BUPROPION HYDROCHLORIDE
     Indication: DEPRESSION
     Dosage: PATIENT WAS INITIALLY TAKING 300-450 MG/DAY AND GRADUALLY INCREASED TO 1,200-1,500 MG/ DAY.
     Route: 048
  2. FLUOXETINE [Concomitant]
     Active Substance: FLUOXETINE HYDROCHLORIDE

REACTIONS (11)
  - Drug abuse [Unknown]
  - Intentional self-injury [Unknown]
  - Suicide attempt [Recovered/Resolved]
  - Tachycardia [Recovered/Resolved]
  - Weight decreased [Unknown]
  - Pancreatitis [Recovered/Resolved]
  - Headache [Unknown]
  - Insomnia [Unknown]
  - Generalised tonic-clonic seizure [Recovered/Resolved]
  - Amnesia [Recovered/Resolved]
  - Anxiety [Unknown]
